FAERS Safety Report 9500491 (Version 1)
Quarter: 2013Q1

REPORT INFORMATION
  Report Type: Spontaneous
  Country: US (occurrence: None)
  Receive Date: 20130124
  Receipt Date: 20130124
  Transmission Date: 20140127
  Serious: No
  Sender: FDA-Public Use
  Company Number: 2012PROUSA02166

PATIENT
  Age: 72 Year
  Sex: Male

DRUGS (1)
  1. PROVENGE (SIPULEUCEL-T) SUSPENSION, 250ML [Suspect]
     Dosage: 250ML, SINGLE, INTRAVENOUS
     Dates: start: 20121008, end: 20121008

REACTIONS (4)
  - Device related infection [None]
  - Device malfunction [None]
  - Vein disorder [None]
  - Urinary tract infection [None]
